FAERS Safety Report 7467428-7 (Version None)
Quarter: 2011Q2

REPORT INFORMATION
  Report Type: 
  Country: None (occurrence: None)
  Receive Date: 20110509
  Receipt Date: 20110405
  Transmission Date: 20111010
  Serious: No
  Sender: FDA-Public Use
  Company Number: US-SANOFI-AVENTIS-2011SA021485

PATIENT
  Age: 39 Year
  Sex: Female

DRUGS (2)
  1. APIDRA [Suspect]
     Dosage: 5-10 UNITS
     Route: 058
     Dates: start: 20100101, end: 20110301
  2. APIDRA [Suspect]
     Dosage: 10-15 UNITS
     Route: 058
     Dates: start: 20110301

REACTIONS (4)
  - BLOOD GLUCOSE INCREASED [None]
  - OEDEMA PERIPHERAL [None]
  - NODULE [None]
  - EXPIRED DRUG ADMINISTERED [None]
